FAERS Safety Report 4525297-9 (Version None)
Quarter: 2004Q4

REPORT INFORMATION
  Report Type: 
  Country: None (occurrence: None)
  Receive Date: 20041213
  Receipt Date: 20041203
  Transmission Date: 20050328
  Serious: Yes (Hospitalization)
  Sender: FDA-Public Use
  Company Number: US-ROCHE-388377

PATIENT
  Age: 64 Year
  Sex: Male

DRUGS (3)
  1. VALIUM [Suspect]
     Indication: DEPRESSION
     Route: 048
  2. VICODIN [Concomitant]
     Indication: PAIN
     Route: 048
  3. ALCOHOL [Concomitant]
     Route: 048

REACTIONS (6)
  - ALCOHOL POISONING [None]
  - ARTHRALGIA [None]
  - ASTHENIA [None]
  - GAIT DISTURBANCE [None]
  - OVERDOSE [None]
  - SELF-MEDICATION [None]
